FAERS Safety Report 26135998 (Version 1)
Quarter: 2025Q4

REPORT INFORMATION
  Report Type: Spontaneous
  Country: EU (occurrence: EU)
  Receive Date: 20251209
  Receipt Date: 20251209
  Transmission Date: 20260118
  Serious: Yes (Hospitalization)
  Sender: EMD SERONO INC
  Company Number: EU-Merck Healthcare KGaA-2025059731

PATIENT
  Age: 27 Year
  Sex: Female

DRUGS (2)
  1. MAVENCLAD [Suspect]
     Active Substance: CLADRIBINE
     Indication: Relapsing-remitting multiple sclerosis
     Dosage: YEAR ONE FIRST SERIES
     Dates: start: 20250909, end: 20250913
  2. MAVENCLAD [Suspect]
     Active Substance: CLADRIBINE
     Dosage: YEAR ONE SECOND SERIES

REACTIONS (9)
  - Immunosuppression [Unknown]
  - Pain in extremity [Not Recovered/Not Resolved]
  - Tendon disorder [Unknown]
  - Swelling [Unknown]
  - Vascular pain [Unknown]
  - Blood alkaline phosphatase decreased [Unknown]
  - Blood bilirubin decreased [Unknown]
  - Vitamin B12 decreased [Unknown]
  - Serum ferritin decreased [Unknown]

NARRATIVE: CASE EVENT DATE: 20251008
